FAERS Safety Report 5740799-5 (Version None)
Quarter: 2008Q2

REPORT INFORMATION
  Report Type: 
  Country: None (occurrence: None)
  Receive Date: 20080515
  Receipt Date: 20080215
  Transmission Date: 20081010
  Serious: No
  Sender: FDA-Public Use
  Company Number: WAES 0802USA03726

PATIENT
  Age: 30 Year
  Sex: Female

DRUGS (1)
  1. TAB ISENTRESS [Suspect]
     Indication: HIV INFECTION
     Dosage: 400 MG/BID/PO
     Route: 048
     Dates: start: 20080201

REACTIONS (1)
  - FATIGUE [None]
